FAERS Safety Report 9275058 (Version 1)
Quarter: 2013Q2

REPORT INFORMATION
  Report Type: Spontaneous
  Country: US (occurrence: None)
  Receive Date: 20130430
  Receipt Date: 20130430
  Transmission Date: 20140414
  Serious: Yes (Other)
  Sender: FDA-Public Use
  Company Number: VAL_01438_2013

PATIENT
  Age: 56 Year
  Sex: Female

DRUGS (1)
  1. BENAZEPRIL W/HYDROCHLOROTHIAZIDE [Suspect]
     Indication: HYPERTENSION
     Dosage: (1 DF QD, DF [20-25 MG] ORAL)
     Dates: start: 20130207, end: 20130317

REACTIONS (4)
  - Cough [None]
  - Drug intolerance [None]
  - Dry throat [None]
  - Product substitution issue [None]
